FAERS Safety Report 5501335-1 (Version None)
Quarter: 2007Q4

REPORT INFORMATION
  Report Type: 
  Country: None (occurrence: None)
  Receive Date: 20071026
  Receipt Date: 20071015
  Transmission Date: 20080405
  Serious: Yes (Hospitalization)
  Sender: FDA-Public Use
  Company Number: POMP-11229

PATIENT
  Age: 62 Year
  Sex: Female
  Weight: 77.5 kg

DRUGS (1)
  1. MYOZYME [Suspect]
     Indication: GLYCOGEN STORAGE DISEASE TYPE II
     Dosage: 20 MG/KG Q2WKS IV
     Route: 042
     Dates: start: 20060901

REACTIONS (2)
  - DIASTOLIC DYSFUNCTION [None]
  - HYPOTENSION [None]
